FAERS Safety Report 5762153-2 (Version None)
Quarter: 2008Q2

REPORT INFORMATION
  Report Type: 
  Country: None (occurrence: None)
  Receive Date: 20080604
  Receipt Date: 20080527
  Transmission Date: 20081010
  Serious: Yes (Other)
  Sender: FDA-Public Use
  Company Number: 2008SP010248

PATIENT
  Sex: Female

DRUGS (8)
  1. INTRON A [Suspect]
     Indication: HEPATITIS C
     Dosage: 3 MIU; TIW
     Dates: start: 19900701, end: 19901201
  2. INTRON A [Suspect]
     Indication: HEPATITIS C
     Dosage: 3 MIU; TIW
     Dates: start: 19990901, end: 19991201
  3. INTERFERON [Suspect]
     Indication: HEPATITIS C
     Dosage: 3 MIU; 9 MIU; BIW
     Dates: start: 19910201, end: 19911201
  4. INTERFERON [Suspect]
     Indication: HEPATITIS C
     Dosage: 3 MIU; 9 MIU; BIW
     Dates: start: 19950701, end: 19960301
  5. INTERFERON [Suspect]
     Indication: HEPATITIS C
     Dosage: 5 MIU; 10 MIU; TIW
     Dates: start: 19920101, end: 19931201
  6. INTERFERON [Suspect]
     Indication: HEPATITIS C
     Dosage: 5 MIU; 10 MIU; TIW
     Dates: start: 19940401, end: 19941201
  7. INTERFERON [Suspect]
     Indication: HEPATITIS C
     Dosage: 5 MIU; 10 MIU; TIW
     Dates: start: 19960301, end: 19970301
  8. RIBAVIRIN [Concomitant]

REACTIONS (3)
  - ALVEOLITIS [None]
  - INTERSTITIAL LUNG DISEASE [None]
  - METABOLIC ALKALOSIS [None]
